FAERS Safety Report 4376379-6 (Version None)
Quarter: 2004Q2

REPORT INFORMATION
  Report Type: 
  Country: None (occurrence: None)
  Receive Date: 20040610
  Receipt Date: 20040602
  Transmission Date: 20050107
  Serious: Yes (Hospitalization, Other)
  Sender: FDA-Public Use
  Company Number: 001633

PATIENT
  Sex: Female

DRUGS (4)
  1. MEDROXYPROGESTERONE ACETATE [Suspect]
     Indication: HORMONE REPLACEMENT THERAPY
  2. MEDROXYPROGESTERONE ACETATE [Suspect]
  3. PREMARIN [Suspect]
  4. PROVERA [Suspect]

REACTIONS (7)
  - ASTHENIA [None]
  - BREAST CANCER [None]
  - CEREBROVASCULAR ACCIDENT [None]
  - DIPLOPIA [None]
  - PARALYSIS [None]
  - THROMBOSIS [None]
  - VISION BLURRED [None]
